FAERS Safety Report 7347091-6 (Version None)
Quarter: 2011Q1

REPORT INFORMATION
  Report Type: 
  Country: None (occurrence: None)
  Receive Date: 20110311
  Receipt Date: 20110305
  Transmission Date: 20110831
  Serious: Yes (Hospitalization, Other)
  Sender: FDA-Public Use
  Company Number: US-GENZYME-FABR-1001829

PATIENT
  Sex: Female

DRUGS (3)
  1. FABRAZYME [Suspect]
     Dosage: 35 MG, Q2W
     Route: 042
     Dates: start: 20091017
  2. FABRAZYME [Suspect]
     Dosage: 65 MG, Q2W
     Route: 042
     Dates: start: 20070323, end: 20091016
  3. FABRAZYME [Suspect]
     Indication: FABRY'S DISEASE
     Dosage: 35 MG, Q3W
     Route: 042
     Dates: start: 20100214

REACTIONS (1)
  - RENAL DISORDER [None]
